FAERS Safety Report 8388473-3 (Version None)
Quarter: 2012Q2

REPORT INFORMATION
  Report Type: 
  Country: None (occurrence: None)
  Receive Date: 20120525
  Receipt Date: 20120516
  Transmission Date: 20120825
  Serious: Yes (Other)
  Sender: FDA-Public Use
  Company Number: US-ROCHE-1069750

PATIENT
  Sex: Male

DRUGS (1)
  1. ACCUTANE [Suspect]
     Indication: PRODUCT USED FOR UNKNOWN INDICATION
     Dates: start: 19930101, end: 19960101

REACTIONS (5)
  - INTESTINAL HAEMORRHAGE [None]
  - ULCER [None]
  - HAEMORRHOIDS [None]
  - PANCREATITIS [None]
  - IRRITABLE BOWEL SYNDROME [None]
